FAERS Safety Report 19278623 (Version 1)
Quarter: 2021Q2

REPORT INFORMATION
  Report Type: Spontaneous
  Country: NO (occurrence: NO)
  Receive Date: 20210520
  Receipt Date: 20210520
  Transmission Date: 20210717
  Serious: Yes (Hospitalization)
  Sender: FDA-Public Use
  Company Number: NO-SUN PHARMACEUTICAL INDUSTRIES LTD-2021RR-297396

PATIENT
  Age: 42 Year
  Sex: Female

DRUGS (3)
  1. SUMATRIPTAN SUN 6MG/0.5ML INJEKSJONSV?SKE, OPPL?SNING [Suspect]
     Active Substance: SUMATRIPTAN
     Indication: MIGRAINE
     Dosage: UNK, 12 MG 2?3 TIMES A WEEK
     Route: 050
     Dates: start: 2017, end: 202103
  2. EMGALITY INJ VAESKE 120 MG [Concomitant]
     Indication: MIGRAINE
     Dosage: ONE DOSE PER 4 WEEKS, UNK
     Route: 065
     Dates: start: 2021
  3. NARAMIG TAB 2,5 MG [Suspect]
     Active Substance: NARATRIPTAN HYDROCHLORIDE
     Indication: MIGRAINE
     Dosage: UNK, 2.5 GR X2 2?3 TIMES A WEEK
     Route: 050
     Dates: start: 2020, end: 202103

REACTIONS (2)
  - Gastrointestinal inflammation [Recovered/Resolved]
  - Faecal calprotectin increased [Recovered/Resolved]
